FAERS Safety Report 14385545 (Version 1)
Quarter: 2018Q1

REPORT INFORMATION
  Report Type: Spontaneous
  Country: US (occurrence: US)
  Receive Date: 20180115
  Receipt Date: 20180115
  Transmission Date: 20180509
  Serious: Yes (Other)
  Sender: FDA-Public Use
  Company Number: US-SA-2016SA234098

PATIENT
  Age: 59 Year
  Sex: Female
  Weight: 104.32 kg

DRUGS (9)
  1. NEOSAR [Concomitant]
     Active Substance: CYCLOPHOSPHAMIDE
  2. DOXIL [Concomitant]
     Active Substance: DOXORUBICIN HYDROCHLORIDE
  3. TAXOTERE [Suspect]
     Active Substance: DOCETAXEL
     Indication: INVASIVE DUCTAL BREAST CARCINOMA
     Dosage: EVERY TWO WEEKS
     Route: 051
     Dates: start: 20090714, end: 20090714
  4. TAXOTERE [Suspect]
     Active Substance: DOCETAXEL
     Indication: INVASIVE DUCTAL BREAST CARCINOMA
     Dosage: EVERY TWO WEEKS
     Route: 051
     Dates: start: 20090813, end: 20090813
  5. TRILIPIX [Concomitant]
     Active Substance: FENOFIBRIC ACID
     Route: 065
     Dates: start: 2005
  6. ADRIAMYCIN [Concomitant]
     Active Substance: DOXORUBICIN HYDROCHLORIDE
  7. CYTOXAN [Concomitant]
     Active Substance: CYCLOPHOSPHAMIDE
  8. LISINOPRIL. [Concomitant]
     Active Substance: LISINOPRIL
     Route: 065
     Dates: start: 2002
  9. CADUET [Concomitant]
     Active Substance: AMLODIPINE BESYLATE\ATORVASTATIN CALCIUM
     Route: 065
     Dates: start: 2002

REACTIONS (6)
  - Emotional distress [Unknown]
  - Psychological trauma [Unknown]
  - Pain [Unknown]
  - Alopecia [Not Recovered/Not Resolved]
  - Anxiety [Unknown]
  - Impaired quality of life [Unknown]

NARRATIVE: CASE EVENT DATE: 200908
